FAERS Safety Report 12174523 (Version 1)
Quarter: 2016Q1

REPORT INFORMATION
  Report Type: Spontaneous
  Country: CA (occurrence: CA)
  Receive Date: 20160312
  Receipt Date: 20160312
  Transmission Date: 20160526
  Serious: Yes (Other)
  Sender: FDA-Public Use
  Company Number: CA-AMGEN-CANSP2016029011

PATIENT
  Age: 59 Year
  Sex: Male

DRUGS (10)
  1. ARANESP [Suspect]
     Active Substance: DARBEPOETIN ALFA
     Indication: PRODUCT USED FOR UNKNOWN INDICATION
     Dosage: 30 MG, QWK
     Route: 065
     Dates: start: 201409
  2. AMLODIPINE [Concomitant]
     Active Substance: AMLODIPINE BESYLATE
     Dosage: 10 MG, UNK
  3. DOXICYCLINE                        /00055701/ [Concomitant]
     Active Substance: DOXYCYCLINE
  4. MULTIVITAMIN                       /00097801/ [Concomitant]
     Active Substance: VITAMINS
  5. FERRLECIT                          /00023541/ [Concomitant]
  6. LANSOPRAZOL [Concomitant]
     Active Substance: LANSOPRAZOLE
  7. RAMIPRIL. [Concomitant]
     Active Substance: RAMIPRIL
  8. IRON [Concomitant]
     Active Substance: IRON
     Dosage: 50/5 MG
     Route: 048
  9. ASA [Concomitant]
     Active Substance: ASPIRIN
  10. RETROVIR [Concomitant]
     Active Substance: ZIDOVUDINE

REACTIONS (1)
  - Renal cancer [Unknown]
